FAERS Safety Report 5976835-0 (Version None)
Quarter: 2008Q4

REPORT INFORMATION
  Report Type: 
  Country: None (occurrence: None)
  Receive Date: 20081203
  Receipt Date: 20080214
  Transmission Date: 20090506
  Serious: No
  Sender: FDA-Public Use
  Company Number: US-AMGEN-KDL265456

PATIENT
  Sex: Female

DRUGS (1)
  1. ENBREL [Suspect]
     Indication: PSORIASIS
     Route: 058
     Dates: start: 20071128

REACTIONS (6)
  - DRY MOUTH [None]
  - DYSGEUSIA [None]
  - ORAL DISORDER [None]
  - ORAL PAIN [None]
  - PHARYNGITIS [None]
  - SINUS CONGESTION [None]
